FAERS Safety Report 15991175 (Version 1)
Quarter: 2019Q1

REPORT INFORMATION
  Report Type: Spontaneous
  Country: SE (occurrence: SE)
  Receive Date: 20190221
  Receipt Date: 20190221
  Transmission Date: 20190418
  Serious: Yes (Other)
  Sender: FDA-Public Use
  Company Number: SE-GILEAD-2019-0391949

PATIENT
  Age: 29 Year
  Sex: Male

DRUGS (4)
  1. OXASCAND [Concomitant]
     Active Substance: OXAZEPAM
     Dosage: UNK
  2. EPCLUSA [Suspect]
     Active Substance: SOFOSBUVIR\VELPATASVIR
     Indication: HEPATITIS C
     Dosage: 1 DF, QD
     Route: 048
     Dates: start: 20190121
  3. LAMOTRIGIN 1A FARMA [Concomitant]
     Dosage: UNK
  4. THERALEN [Concomitant]
     Active Substance: TRIMEPRAZINE
     Dosage: UNK ML

REACTIONS (3)
  - Middle insomnia [Not Recovered/Not Resolved]
  - Mood swings [Not Recovered/Not Resolved]
  - Anxiety [Not Recovered/Not Resolved]

NARRATIVE: CASE EVENT DATE: 20190121
